FAERS Safety Report 17198284 (Version 2)
Quarter: 2021Q1

REPORT INFORMATION
  Report Type: Other
  Country: US (occurrence: US)
  Receive Date: 20191225
  Receipt Date: 20210303
  Transmission Date: 20210419
  Serious: Yes (Other)
  Sender: FDA-Public Use
  Company Number: US-ROCHE-2498938

PATIENT
  Age: 51 Year
  Sex: Female
  Weight: 118.04 kg

DRUGS (13)
  1. DIAZEPAM. [Concomitant]
     Active Substance: DIAZEPAM
     Indication: ANXIETY
  2. LEXAPRO [Concomitant]
     Active Substance: ESCITALOPRAM OXALATE
     Indication: ANXIETY
  3. PANTOPRAZOLE [Concomitant]
     Active Substance: PANTOPRAZOLE
     Indication: IRRITABLE BOWEL SYNDROME
     Route: 048
  4. FLUTICASONE. [Concomitant]
     Active Substance: FLUTICASONE
     Indication: HYPERSENSITIVITY
     Dosage: STARTED 2?3 YRS AGO 2?3 TIMES/DAY 1SPRAY EACH NARE
     Route: 045
  5. OCREVUS [Suspect]
     Active Substance: OCRELIZUMAB
     Indication: MULTIPLE SCLEROSIS
     Dosage: LAST DOSE RECEIVED ON 16/JUL/2020
     Route: 042
     Dates: start: 20180625
  6. VITAMIN D2 [Concomitant]
     Active Substance: ERGOCALCIFEROL
     Indication: VITAMIN D DECREASED
     Dosage: 100,000 TO 150,000 IUS AS NEEDED
     Route: 048
     Dates: start: 2006
  7. SINGULAIR [Concomitant]
     Active Substance: MONTELUKAST SODIUM
     Indication: HYPERSENSITIVITY
     Route: 048
  8. MOMETASONE [Concomitant]
     Active Substance: MOMETASONE
     Route: 061
  9. LEXAPRO [Concomitant]
     Active Substance: ESCITALOPRAM OXALATE
     Indication: DEPRESSION
     Route: 048
     Dates: start: 2006
  10. TRIAMCINOLONE [Concomitant]
     Active Substance: TRIAMCINOLONE
     Route: 061
  11. AYR SALINE [Concomitant]
     Active Substance: SODIUM CHLORIDE
     Indication: NASAL DRYNESS
     Dosage: 1 SPRAY AS MANY TIMES AS NEEDED
     Route: 045
  12. ZYRTEC (UNITED STATES) [Concomitant]
     Indication: HYPERSENSITIVITY
     Route: 048
  13. DIAZEPAM. [Concomitant]
     Active Substance: DIAZEPAM
     Indication: MUSCLE SPASMS
     Dosage: TAKES 5 TO12.5 MG/DAY AS NEEDED
     Route: 048

REACTIONS (23)
  - Fatigue [Unknown]
  - Nystagmus [Recovered/Resolved]
  - Back pain [Recovered/Resolved]
  - Rash erythematous [Not Recovered/Not Resolved]
  - Vestibular disorder [Not Recovered/Not Resolved]
  - Pain [Recovered/Resolved]
  - Gait disturbance [Not Recovered/Not Resolved]
  - Drug ineffective [Unknown]
  - Nasopharyngitis [Unknown]
  - Fall [Unknown]
  - Contusion [Recovered/Resolved]
  - Multiple sclerosis relapse [Not Recovered/Not Resolved]
  - Stress [Not Recovered/Not Resolved]
  - Ear pruritus [Recovered/Resolved]
  - Throat irritation [Recovered/Resolved]
  - Oropharyngeal pain [Not Recovered/Not Resolved]
  - Vitamin D decreased [Unknown]
  - Balance disorder [Recovered/Resolved]
  - Keloid scar [Not Recovered/Not Resolved]
  - Bronchitis bacterial [Not Recovered/Not Resolved]
  - Vertigo [Recovered/Resolved]
  - Sciatica [Recovered/Resolved]
  - Peripheral swelling [Recovered/Resolved]

NARRATIVE: CASE EVENT DATE: 20180625
